FAERS Safety Report 6384858-5 (Version None)
Quarter: 2009Q4

REPORT INFORMATION
  Report Type: 
  Country: None (occurrence: None)
  Receive Date: 20091002
  Receipt Date: 20090922
  Transmission Date: 20100525
  Serious: Yes (Hospitalization)
  Sender: FDA-Public Use
  Company Number: US-BIOGENIDEC-2008BI019491

PATIENT
  Age: 63 Year
  Sex: Male
  Weight: 68 kg

DRUGS (4)
  1. AVONEX [Suspect]
     Indication: MULTIPLE SCLEROSIS
     Route: 030
     Dates: start: 19991201, end: 20030101
  2. AVONEX [Suspect]
     Route: 030
     Dates: start: 20030101, end: 20060103
  3. AVONEX [Suspect]
     Route: 030
     Dates: end: 20080201
  4. AVONEX [Suspect]
     Route: 030
     Dates: start: 20081012

REACTIONS (3)
  - ACUTE PROMYELOCYTIC LEUKAEMIA [None]
  - GINGIVAL BLEEDING [None]
  - WHITE BLOOD CELL COUNT DECREASED [None]
